FAERS Safety Report 11251666 (Version 1)
Quarter: 2015Q3

REPORT INFORMATION
  Report Type: Spontaneous
  Country: US (occurrence: US)
  Receive Date: 20150708
  Receipt Date: 20150708
  Transmission Date: 20151125
  Serious: No
  Sender: FDA-Public Use
  Company Number: US-ELI_LILLY_AND_COMPANY-US201205005746

PATIENT
  Age: 65 Year
  Sex: Female

DRUGS (4)
  1. ALIMTA [Suspect]
     Active Substance: PEMETREXED DISODIUM
     Indication: LUNG NEOPLASM MALIGNANT
     Dosage: UNK, UNKNOWN
  2. PLAVIX [Concomitant]
     Active Substance: CLOPIDOGREL BISULFATE
  3. VITAMIN B12 [Concomitant]
     Active Substance: CYANOCOBALAMIN
  4. FOLIC ACID. [Concomitant]
     Active Substance: FOLIC ACID

REACTIONS (9)
  - Fatigue [Unknown]
  - Epistaxis [Unknown]
  - Somnolence [Unknown]
  - Asthenia [Unknown]
  - Nausea [Unknown]
  - Influenza like illness [Unknown]
  - Decreased appetite [Unknown]
  - Pyrexia [Unknown]
  - Vomiting [Unknown]
